FAERS Safety Report 9536857 (Version 2)
Quarter: 2013Q4

REPORT INFORMATION
  Report Type: Spontaneous
  Country: US (occurrence: US)
  Receive Date: 20130919
  Receipt Date: 20131122
  Transmission Date: 20140711
  Serious: Yes (Other)
  Sender: FDA-Public Use
  Company Number: US-PFIZER INC-2013268948

PATIENT
  Age: 52 Year
  Sex: Male

DRUGS (2)
  1. DILANTIN [Suspect]
     Indication: CONVULSION
     Dosage: 100 MG, 3X/DAY
     Route: 048
     Dates: start: 201303
  2. NEURONTIN [Suspect]
     Indication: PROPHYLAXIS
     Dosage: 900 MG (BY TAKING 3 CAPSULES OF 300MG), 1X/DAY
     Route: 048
     Dates: start: 201303, end: 2013

REACTIONS (6)
  - Encephalitis [Not Recovered/Not Resolved]
  - Head banging [Not Recovered/Not Resolved]
  - Eye injury [Not Recovered/Not Resolved]
  - Drug ineffective [Not Recovered/Not Resolved]
  - Tremor [Not Recovered/Not Resolved]
  - Drug level decreased [Not Recovered/Not Resolved]
